FAERS Safety Report 8399157-X (Version None)
Quarter: 2012Q2

REPORT INFORMATION
  Report Type: 
  Country: None (occurrence: None)
  Receive Date: 20120323
  Receipt Date: 20111005
  Transmission Date: 20120825
  Serious: Yes (Other)
  Sender: FDA-Public Use
  Company Number: 163-21880-11061685

PATIENT
  Age: 74 Year
  Sex: Male
  Weight: 113.8529 kg

DRUGS (15)
  1. ACYCLOVIR [Concomitant]
  2. PROTONIX [Concomitant]
  3. REVLIMID [Suspect]
     Indication: MULTIPLE MYELOMA
     Dosage: 20 MG, 2 IN 1 D, PO, 25 MG, 1 IN 1 D, PO, 15 MG, 1 IN 1 D, PO , 10 MG, 1 IN 1 D, PO
     Route: 048
     Dates: start: 20100601
  4. COLACE (DOCUSATE SODIUM) [Concomitant]
  5. MAGNESIUM (MAGNESIUM) [Concomitant]
  6. ATIVAN [Concomitant]
  7. LASIX [Concomitant]
  8. POTASSIUM CHLORIDE [Concomitant]
  9. AMITRIPTYLINE HCL [Concomitant]
  10. SIMVASTATIN [Concomitant]
  11. ASPIRIN [Concomitant]
  12. DEXAMETHASONE [Concomitant]
  13. FISH OIL (FISH OIL) [Concomitant]
  14. VELCADE (BORTEXOMIB) [Concomitant]
  15. VITAMIN D [Concomitant]

REACTIONS (1)
  - PANCYTOPENIA [None]
